FAERS Safety Report 5722291-7 (Version None)
Quarter: 2008Q2

REPORT INFORMATION
  Report Type: 
  Country: None (occurrence: None)
  Receive Date: 20080429
  Receipt Date: 20070927
  Transmission Date: 20081010
  Serious: No
  Sender: FDA-Public Use
  Company Number: US-ASTRAZENECA-2007UW22635

PATIENT
  Age: 65 Year
  Sex: Female
  Weight: 113.4 kg

DRUGS (7)
  1. NEXIUM [Suspect]
     Indication: GASTROOESOPHAGEAL REFLUX DISEASE
     Route: 048
     Dates: start: 20070801, end: 20070801
  2. GLUCOTROL [Concomitant]
  3. LANTUS [Concomitant]
  4. ZOCOR [Concomitant]
  5. LOPID [Concomitant]
  6. IRON SHOTS [Concomitant]
  7. FERROUS FUMERATE [Concomitant]

REACTIONS (1)
  - JOINT SWELLING [None]
